FAERS Safety Report 19415088 (Version 7)
Quarter: 2022Q2

REPORT INFORMATION
  Report Type: Other
  Country: US (occurrence: US)
  Receive Date: 20210615
  Receipt Date: 20220519
  Transmission Date: 20220721
  Serious: No
  Sender: FDA-Public Use
  Company Number: US-NEUROCRINE BIOSCIENCES INC.-2021NBI02827

PATIENT

DRUGS (6)
  1. INGREZZA [Suspect]
     Active Substance: VALBENAZINE
     Indication: Tardive dyskinesia
     Dosage: 80 MILLIGRAM, QD
     Route: 048
     Dates: start: 20210219, end: 2021
  2. INGREZZA [Suspect]
     Active Substance: VALBENAZINE
     Dosage: 40 MILLIGRAM, QD
     Route: 048
     Dates: start: 20201112, end: 20210218
  3. MIRABEGRON [Concomitant]
     Active Substance: MIRABEGRON
     Dosage: UNK
  4. DEPAKOTE ER [Concomitant]
     Active Substance: DIVALPROEX SODIUM
     Indication: Bipolar disorder
     Dosage: 500 MILLIGRAM
     Route: 048
     Dates: start: 2014
  5. LURASIDONE [Concomitant]
     Active Substance: LURASIDONE
     Indication: Bipolar disorder
     Dosage: 20 MILLIGRAM
     Route: 048
     Dates: start: 202011
  6. BUSPAR [Concomitant]
     Active Substance: BUSPIRONE HYDROCHLORIDE
     Dosage: UNK

REACTIONS (4)
  - Fall [Recovered/Resolved]
  - Tremor [Unknown]
  - Dyskinesia [Unknown]
  - Drug ineffective [Unknown]
